FAERS Safety Report 19829761 (Version 1)
Quarter: 2021Q3

REPORT INFORMATION
  Report Type: Spontaneous
  Country: US (occurrence: US)
  Receive Date: 20210915
  Receipt Date: 20210915
  Transmission Date: 20211014
  Serious: No
  Sender: FDA-Public Use
  Company Number: US-AUROBINDO-AUR-APL-2021-011012

PATIENT
  Age: 65 Year
  Sex: Female

DRUGS (1)
  1. PAROXETINE. [Suspect]
     Active Substance: PAROXETINE
     Indication: PRODUCT USED FOR UNKNOWN INDICATION
     Dosage: 20 MILLIGRAM, ONCE A DAY (IN THE MORNING)
     Route: 048

REACTIONS (4)
  - Tremor [Unknown]
  - Drug ineffective [Unknown]
  - Anxiety [Unknown]
  - Product substitution issue [Unknown]
